FAERS Safety Report 24612680 (Version 1)
Quarter: 2024Q4

REPORT INFORMATION
  Report Type: Spontaneous
  Country: US (occurrence: US)
  Receive Date: 20241113
  Receipt Date: 20241113
  Transmission Date: 20250114
  Serious: Yes (Death, Life-Threatening, Hospitalization, Other)
  Sender: GLENMARK
  Company Number: US-MLMSERVICE-20241028-PI241118-00104-1

PATIENT

DRUGS (2)
  1. CLINDAMYCIN HYDROCHLORIDE [Suspect]
     Active Substance: CLINDAMYCIN HYDROCHLORIDE
     Indication: Decubitus ulcer
     Dosage: UNK
     Route: 065
  2. CLINDAMYCIN HYDROCHLORIDE [Suspect]
     Active Substance: CLINDAMYCIN HYDROCHLORIDE
     Indication: Skin infection

REACTIONS (9)
  - Mental status changes [Fatal]
  - Hypotension [Fatal]
  - Renal impairment [Fatal]
  - Vaginal haemorrhage [Fatal]
  - Multiple organ dysfunction syndrome [Fatal]
  - Gastrointestinal inflammation [Fatal]
  - Systemic inflammatory response syndrome [Fatal]
  - Melaena [Fatal]
  - Toxic epidermal necrolysis [Fatal]
